FAERS Safety Report 8972216 (Version 1)
Quarter: 2012Q4

REPORT INFORMATION
  Report Type: 
  Country: US (occurrence: US)
  Receive Date: 20121219
  Receipt Date: 20121219
  Transmission Date: 20130627
  Serious: No
  Sender: FDA-Public Use
  Company Number: US-MYLANLABS-2012S1014729

PATIENT
  Age: 63 Year
  Sex: Female

DRUGS (1)
  1. LEVETIRACETAM [Suspect]
     Indication: CONVULSION
     Route: 048
     Dates: start: 201206, end: 201207

REACTIONS (2)
  - Rash [Recovered/Resolved]
  - Reaction to drug excipients [Recovered/Resolved]
